FAERS Safety Report 6853898-1 (Version None)
Quarter: 2010Q3

REPORT INFORMATION
  Report Type: 
  Country: None (occurrence: None)
  Receive Date: 20100717
  Receipt Date: 20071221
  Transmission Date: 20110219
  Serious: No
  Sender: FDA-Public Use
  Company Number: US-PFIZER INC-2007108468

PATIENT
  Sex: Female
  Weight: 54.09 kg

DRUGS (4)
  1. CHANTIX [Suspect]
     Indication: SMOKING CESSATION THERAPY
     Dates: start: 20071212
  2. ADALAT [Concomitant]
     Indication: HYPERTENSION
  3. PLAVIX [Concomitant]
     Indication: BLOOD TRIGLYCERIDES INCREASED
  4. VYTORIN [Concomitant]
     Indication: BLOOD TRIGLYCERIDES INCREASED

REACTIONS (2)
  - INCORRECT DOSE ADMINISTERED [None]
  - INSOMNIA [None]
